FAERS Safety Report 5596701-2 (Version None)
Quarter: 2008Q1

REPORT INFORMATION
  Report Type: 
  Country: None (occurrence: None)
  Receive Date: 20080118
  Receipt Date: 20080108
  Transmission Date: 20080703
  Serious: Yes (Death, Other)
  Sender: FDA-Public Use
  Company Number: US-PFIZER INC-2008001321

PATIENT
  Sex: Female

DRUGS (23)
  1. CHANTIX [Suspect]
     Indication: SMOKING CESSATION THERAPY
  2. RELPAX [Suspect]
     Indication: MIGRAINE
  3. OXYBUTYNIN CHLORIDE [Suspect]
  4. COMBIVENT [Suspect]
     Indication: ASTHMA
  5. ASPIRIN [Suspect]
  6. TENORMIN [Suspect]
  7. BUPROPION HCL [Concomitant]
  8. BUSPAR [Concomitant]
  9. CLONAZEPAM [Concomitant]
     Dosage: FREQ:UP TO THREE TIMES DAILY
  10. CODEINE [Concomitant]
  11. COLESTYRAMINE [Concomitant]
  12. LOMOTIL [Concomitant]
  13. ERGOCALCIFEROL [Concomitant]
  14. ALLEGRA [Concomitant]
  15. ADVAIR DISKUS 100/50 [Concomitant]
  16. MONOPRIL [Concomitant]
  17. KYTRIL [Concomitant]
  18. LORAZEPAM [Concomitant]
  19. ZYPREXA [Concomitant]
  20. PRILOSEC [Concomitant]
  21. VITAMIN B-12 [Concomitant]
  22. PRAVASTATIN [Concomitant]
  23. AMBIEN [Concomitant]

REACTIONS (7)
  - ABNORMAL DREAMS [None]
  - CARDIOPULMONARY FAILURE [None]
  - COMPLETED SUICIDE [None]
  - CONFUSIONAL STATE [None]
  - DEPRESSED MOOD [None]
  - OVERDOSE [None]
  - RESPIRATORY FAILURE [None]
